FAERS Safety Report 21178470 (Version 1)
Quarter: 2022Q3

REPORT INFORMATION
  Report Type: Spontaneous
  Country: US (occurrence: None)
  Receive Date: 20220805
  Receipt Date: 20220805
  Transmission Date: 20221026
  Serious: Yes (Hospitalization)
  Sender: FDA-Public Use
  Company Number: None

PATIENT
  Age: 36 Year
  Sex: Female
  Weight: 55.8 kg

DRUGS (1)
  1. ATOVAQUONE\PROGUANIL [Suspect]
     Active Substance: ATOVAQUONE\PROGUANIL
     Indication: Malaria prophylaxis
     Dosage: FREQUENCY : DAILY;?
     Route: 048

REACTIONS (10)
  - Palpitations [None]
  - Chest pain [None]
  - Dyspnoea [None]
  - Amnesia [None]
  - Aphasia [None]
  - Dry mouth [None]
  - Paranoia [None]
  - Anxiety [None]
  - Hypoaesthesia [None]
  - Paraesthesia [None]

NARRATIVE: CASE EVENT DATE: 20220713
